FAERS Safety Report 24657108 (Version 1)
Quarter: 2024Q4

REPORT INFORMATION
  Report Type: Spontaneous
  Country: US (occurrence: US)
  Receive Date: 20241125
  Receipt Date: 20241125
  Transmission Date: 20250114
  Serious: No
  Sender: Harrow Health
  Company Number: US-IMP-2024000875

PATIENT
  Sex: Female

DRUGS (1)
  1. FRESHKOTE PRESERVATIVE FREE LUBRICATING EYE DROPS [Suspect]
     Active Substance: POLYVINYL ALCOHOL\POVIDONE
     Indication: Product used for unknown indication
     Route: 065

REACTIONS (1)
  - Eye irritation [Unknown]
